FAERS Safety Report 11010428 (Version 1)
Quarter: 2015Q2

REPORT INFORMATION
  Report Type: Spontaneous
  Country: US (occurrence: US)
  Receive Date: 20150410
  Receipt Date: 20150410
  Transmission Date: 20150821
  Serious: No
  Sender: FDA-Public Use
  Company Number: US-GLAXOSMITHKLINE-A1049302A

PATIENT
  Sex: Female

DRUGS (10)
  1. PAXIL [Suspect]
     Active Substance: PAROXETINE HYDROCHLORIDE
     Indication: PRODUCT USED FOR UNKNOWN INDICATION
     Route: 065
  2. RANITIDINE [Concomitant]
     Active Substance: RANITIDINE\RANITIDINE HYDROCHLORIDE
  3. ZOFRAN [Suspect]
     Active Substance: ONDANSETRON HYDROCHLORIDE
  4. LORATADINE. [Concomitant]
     Active Substance: LORATADINE
  5. CLONOPIN [Concomitant]
     Active Substance: CLONAZEPAM
  6. LYRICA [Concomitant]
     Active Substance: PREGABALIN
  7. CARVEDILOL. [Concomitant]
     Active Substance: CARVEDILOL
  8. CELEBREX [Concomitant]
     Active Substance: CELECOXIB
  9. MULTIVITAMIN [Concomitant]
     Active Substance: VITAMINS
  10. CYMBALTA [Concomitant]
     Active Substance: DULOXETINE HYDROCHLORIDE

REACTIONS (2)
  - Drug hypersensitivity [Unknown]
  - Nausea [Unknown]
